FAERS Safety Report 7502494-1 (Version None)
Quarter: 2011Q2

REPORT INFORMATION
  Report Type: 
  Country: None (occurrence: None)
  Receive Date: 20110523
  Receipt Date: 20110523
  Transmission Date: 20111010
  Serious: Yes (Other)
  Sender: FDA-Public Use
  Company Number: None

PATIENT
  Age: 68 Year
  Sex: Female
  Weight: 68.2 kg

DRUGS (1)
  1. DICLOFENAC SODIUM [Suspect]
     Indication: BURSITIS
     Dosage: 50 MG 3/DAY
     Dates: start: 20110224, end: 20110505

REACTIONS (9)
  - ARTHROPATHY [None]
  - NAUSEA [None]
  - ARTHRALGIA [None]
  - FEELING ABNORMAL [None]
  - BONE PAIN [None]
  - MOBILITY DECREASED [None]
  - JOINT STIFFNESS [None]
  - DIARRHOEA [None]
  - CHEST DISCOMFORT [None]
